FAERS Safety Report 10262054 (Version 1)
Quarter: 2014Q2

REPORT INFORMATION
  Report Type: Spontaneous
  Country: US (occurrence: US)
  Receive Date: 20140626
  Receipt Date: 20140626
  Transmission Date: 20141212
  Serious: No
  Sender: FDA-Public Use
  Company Number: US-PFIZER INC-2014171946

PATIENT
  Age: 60 Year
  Sex: Male
  Weight: 71.2 kg

DRUGS (2)
  1. LYRICA [Suspect]
     Indication: NEUROPATHY PERIPHERAL
     Dosage: 100 MG, 3X/DAY
     Route: 048
  2. ALBUTEROL [Concomitant]
     Dosage: UNK

REACTIONS (2)
  - Pain [Unknown]
  - Paraesthesia [Unknown]
